FAERS Safety Report 5869369-5 (Version None)
Quarter: 2008Q3

REPORT INFORMATION
  Report Type: 
  Country: None (occurrence: None)
  Receive Date: 20080903
  Receipt Date: 20080823
  Transmission Date: 20090109
  Serious: No
  Sender: FDA-Public Use
  Company Number: US-BOEHRINGER INGELHEIM GMBH, GERMANY-2008-BP-13586PF

PATIENT
  Sex: Male
  Weight: 60 kg

DRUGS (7)
  1. SPIRIVA [Suspect]
     Indication: SMOKING CESSATION THERAPY
     Dates: start: 20080720, end: 20080821
  2. CHANTIX [Concomitant]
     Dates: start: 20080701
  3. ADVAIR DISKUS 100/50 [Concomitant]
     Dates: start: 20080720, end: 20080821
  4. XANAX [Concomitant]
  5. VIAGRA [Concomitant]
  6. SEROQUEL [Concomitant]
  7. REMERON [Concomitant]

REACTIONS (1)
  - DYSGEUSIA [None]
